FAERS Safety Report 8967517 (Version 2)
Quarter: 2013Q1

REPORT INFORMATION
  Report Type: Spontaneous
  Country: US (occurrence: US)
  Receive Date: 20121214
  Receipt Date: 20130124
  Transmission Date: 20140127
  Serious: Yes (Other)
  Sender: FDA-Public Use
  Company Number: US-PFIZER INC-2012315748

PATIENT
  Age: 78 Year
  Sex: Female
  Weight: 86 kg

DRUGS (4)
  1. LYRICA [Suspect]
     Indication: POST HERPETIC NEURALGIA
     Dosage: 50 MG, 3X/DAY
     Route: 048
     Dates: start: 2012
  2. LORTAB [Suspect]
     Indication: POST HERPETIC NEURALGIA
     Dosage: 7.5/500 MG, DAILY
     Dates: start: 2012
  3. AMLODIPINE [Concomitant]
     Indication: BLOOD PRESSURE ABNORMAL
     Dosage: UNK, DAILY
  4. KLOR-CON [Concomitant]
     Indication: BLOOD POTASSIUM ABNORMAL
     Dosage: 20 MG, 1X/DAY

REACTIONS (8)
  - Fungal skin infection [Unknown]
  - Local swelling [Recovered/Resolved]
  - Fluid retention [Unknown]
  - Weight decreased [Unknown]
  - Drug ineffective [Unknown]
  - Pruritus [Unknown]
  - Pain [Unknown]
  - Feeling hot [Unknown]
